FAERS Safety Report 8013907-3 (Version None)
Quarter: 2011Q4

REPORT INFORMATION
  Report Type: 
  Country: None (occurrence: None)
  Receive Date: 20111229
  Receipt Date: 20111214
  Transmission Date: 20120403
  Serious: Yes (Death)
  Sender: FDA-Public Use
  Company Number: ES-ROCHE-1022180

PATIENT
  Sex: Female

DRUGS (1)
  1. HERCEPTIN [Suspect]
     Indication: GASTRIC CANCER
     Dosage: UNKNOWN
     Route: 065

REACTIONS (1)
  - PULMONARY EMBOLISM [None]
